FAERS Safety Report 23635278 (Version 1)
Quarter: 2024Q1

REPORT INFORMATION
  Report Type: Spontaneous
  Country: IT (occurrence: IT)
  Receive Date: 20240315
  Receipt Date: 20240315
  Transmission Date: 20240410
  Serious: Yes (Other)
  Sender: FDA-Public Use
  Company Number: IT-ROCHE-2571091

PATIENT
  Age: 55 Year
  Sex: Female

DRUGS (16)
  1. FEMARA [Suspect]
     Active Substance: LETROZOLE
     Indication: HER2 positive breast cancer
     Dosage: 2.500MG QD
     Route: 048
     Dates: start: 20180618
  2. HERCEPTIN [Suspect]
     Active Substance: TRASTUZUMAB
     Indication: HER2 positive breast cancer
     Dosage: MOST RECENT DOSE PRIOR TO THE EVENT: 26/FEB/2018
     Route: 042
     Dates: start: 20180205
  3. LETROZOLE [Suspect]
     Active Substance: LETROZOLE
     Indication: Breast cancer
     Dosage: 2.5 MG, QD
     Route: 048
     Dates: start: 20180618
  4. NOLVADEX [Suspect]
     Active Substance: TAMOXIFEN CITRATE
     Indication: HER2 positive breast cancer
     Dosage: MOST RECENT DOSE ON 22/JAN/2018.
     Route: 048
     Dates: start: 20121210
  5. PACLITAXEL [Suspect]
     Active Substance: PACLITAXEL
     Indication: Breast cancer
     Dosage: 150 UG, QW (MOST RECENT DOSE ON 30/APR/2018.)
     Route: 042
     Dates: start: 20180205, end: 20180430
  6. PERJETA [Suspect]
     Active Substance: PERTUZUMAB
     Indication: HER2 positive breast cancer
     Dosage: MOST RECENT DOSE PRIOR TO THE EVENT: 26/FEB/2018
     Route: 042
     Dates: start: 20180205
  7. PERTUZUMAB [Suspect]
     Active Substance: PERTUZUMAB
     Indication: Breast cancer
     Dosage: 840 MG, TIW (MOST RECENT DOSE PRIOR TO THE EVENT: 26/FEB/2018)
     Route: 042
     Dates: start: 20180205
  8. TAMOXIFEN [Suspect]
     Active Substance: TAMOXIFEN
     Indication: Breast cancer
     Dosage: 20 MG, QD (MOST RECENT DOSE ON 22/JAN/2018.)
     Route: 048
     Dates: start: 20121210, end: 20180122
  9. TAXOL [Suspect]
     Active Substance: PACLITAXEL
     Indication: HER2 positive breast cancer
     Dosage: MOST RECENT DOSE ON 30/APR/2018.
     Route: 042
     Dates: start: 20180205
  10. TRASTUZUMAB [Suspect]
     Active Substance: TRASTUZUMAB
     Indication: Breast cancer
     Dosage: 640 MG, TIW (MOST RECENT DOSE PRIOR TO THE EVENT: 26/FEB/2018)
     Route: 041
     Dates: start: 20180205
  11. BISOPROLOL [Concomitant]
     Active Substance: BISOPROLOL\BISOPROLOL FUMARATE
     Indication: Product used for unknown indication
     Dosage: UNK
     Route: 065
     Dates: start: 20190111
  12. CHLORPHENIRAMINE MALEATE [Concomitant]
     Active Substance: CHLORPHENIRAMINE MALEATE
     Indication: Product used for unknown indication
     Dosage: UNK
     Route: 065
     Dates: start: 20180525
  13. CHLORPHENIRAMINE MALEATE [Concomitant]
     Active Substance: CHLORPHENIRAMINE MALEATE
     Dosage: ONGOING = NOT CHECKED
     Route: 065
     Dates: start: 20180525, end: 20190508
  14. CHOLECALCIFEROL [Concomitant]
     Active Substance: CHOLECALCIFEROL
     Indication: Product used for unknown indication
     Dosage: UNK
     Route: 065
     Dates: start: 20180730
  15. LANSOPRAZOLE [Concomitant]
     Active Substance: LANSOPRAZOLE
     Indication: Product used for unknown indication
     Dosage: UNK
     Route: 065
     Dates: start: 20180326
  16. XARELTO [Concomitant]
     Active Substance: RIVAROXABAN
     Indication: Product used for unknown indication
     Dosage: UNK
     Route: 065
     Dates: start: 20190111

REACTIONS (1)
  - Atrial fibrillation [Recovered/Resolved]

NARRATIVE: CASE EVENT DATE: 20190508
